FAERS Safety Report 9174330 (Version 3)
Quarter: 2013Q2

REPORT INFORMATION
  Report Type: Report from Study
  Country: AR (occurrence: AR)
  Receive Date: 20130320
  Receipt Date: 20130429
  Transmission Date: 20140414
  Serious: Yes (Death, Other)
  Sender: FDA-Public Use
  Company Number: PHHY2013AR026466

PATIENT
  Sex: Female

DRUGS (3)
  1. GALVUS [Suspect]
  2. DIOVAN [Suspect]
     Indication: HYPERTENSION
     Dosage: 1 DF, DAILY
     Route: 048
  3. EXFORGE [Suspect]
     Dosage: 1 DF (160 MG VALS AND 5 MG AMLO) UKN

REACTIONS (3)
  - Cardiac valve replacement complication [Fatal]
  - Cardiac arrest [Unknown]
  - Arrhythmia [Unknown]
